FAERS Safety Report 10399935 (Version 1)
Quarter: 2014Q3

REPORT INFORMATION
  Report Type: Spontaneous
  Country: US (occurrence: US)
  Receive Date: 20140821
  Receipt Date: 20140821
  Transmission Date: 20150326
  Serious: Yes (Other)
  Sender: FDA-Public Use
  Company Number: US-GLAXOSMITHKLINE-B1025170A

PATIENT
  Age: 6 Year
  Sex: Female

DRUGS (9)
  1. VINBLASTINE [Suspect]
     Active Substance: VINBLASTINE
     Indication: SMALL CELL CARCINOMA
     Route: 065
  2. CYCLOPHOSPHAMIDE. [Suspect]
     Active Substance: CYCLOPHOSPHAMIDE
     Indication: SMALL CELL CARCINOMA
     Route: 065
  3. BLEOMYCIN [Suspect]
     Active Substance: BLEOMYCIN SULFATE
     Indication: SMALL CELL CARCINOMA
     Route: 065
  4. ETOPOSIDE. [Suspect]
     Active Substance: ETOPOSIDE
     Indication: SMALL CELL CARCINOMA
     Route: 065
  5. BEVACIZUMAB [Suspect]
     Active Substance: BEVACIZUMAB
     Indication: SMALL CELL CARCINOMA
     Route: 065
  6. CISPLATIN. [Suspect]
     Active Substance: CISPLATIN
     Indication: SMALL CELL CARCINOMA
     Route: 065
  7. CARBOPLATIN. [Suspect]
     Active Substance: CARBOPLATIN
     Indication: SMALL CELL CARCINOMA
     Route: 065
  8. MELPHALAN [Suspect]
     Active Substance: MELPHALAN
     Indication: SMALL CELL CARCINOMA
     Route: 065
  9. DOXORUBICIN [Suspect]
     Active Substance: DOXORUBICIN
     Indication: SMALL CELL CARCINOMA
     Route: 065

REACTIONS (9)
  - Bone marrow failure [Unknown]
  - Venoocclusive liver disease [Unknown]
  - Respiratory failure [Unknown]
  - Diarrhoea [Unknown]
  - Febrile neutropenia [Unknown]
  - Abdominal compartment syndrome [Unknown]
  - Decreased appetite [Unknown]
  - Ascites [Unknown]
  - Renal failure [Unknown]
